FAERS Safety Report 8537459-4 (Version None)
Quarter: 2012Q3

REPORT INFORMATION
  Report Type: 
  Country: None (occurrence: None)
  Receive Date: 20120725
  Receipt Date: 20120717
  Transmission Date: 20120928
  Serious: No
  Sender: FDA-Public Use
  Company Number: US-B.I. PHARMACEUTICALS,INC./RIDGEFIELD-2012-BP-15929BP

PATIENT
  Sex: Female

DRUGS (11)
  1. AGGRENOX [Suspect]
     Indication: CEREBROVASCULAR ACCIDENT PROPHYLAXIS
     Route: 048
     Dates: start: 20120301
  2. COLACE [Concomitant]
     Indication: CONSTIPATION PROPHYLAXIS
     Route: 048
  3. XALATAN [Concomitant]
     Dosage: STRENGTH: 1 GTT; DAILY DOSE: 1GTT
  4. ALLEGRA [Concomitant]
     Indication: HYPERSENSITIVITY
  5. PRILOSEC [Concomitant]
     Indication: GASTROOESOPHAGEAL REFLUX DISEASE
     Dosage: 20 MG
     Route: 048
  6. VITAMIN D [Concomitant]
     Indication: VITAMIN SUPPLEMENTATION
     Dosage: 200 U
     Route: 048
  7. HYDROCODONE [Concomitant]
     Indication: PAIN
     Dosage: (TABLET) STRENGTH: 10/325 MG;
     Route: 048
  8. LIPITOR [Concomitant]
     Indication: BLOOD CHOLESTEROL
     Dosage: 40 MG
     Route: 048
  9. VITAMIN B COMPLEX CAP [Concomitant]
     Indication: VITAMIN SUPPLEMENTATION
  10. BYSTOLIC [Concomitant]
     Indication: BLOOD PRESSURE
     Dosage: (TABLET) STRENGTH: 2.5 MG;
     Route: 048
  11. JANUVIA [Concomitant]
     Indication: TYPE 2 DIABETES MELLITUS
     Dosage: 100 MG
     Route: 048
     Dates: start: 20070101

REACTIONS (5)
  - ABNORMAL FAECES [None]
  - NAUSEA [None]
  - SINUS DISORDER [None]
  - HEADACHE [None]
  - VITAMIN D DECREASED [None]
